FAERS Safety Report 19188363 (Version 1)
Quarter: 2021Q2

REPORT INFORMATION
  Report Type: Report from Study
  Country: US (occurrence: US)
  Receive Date: 20210428
  Receipt Date: 20210428
  Transmission Date: 20210717
  Serious: Yes (Other)
  Sender: FDA-Public Use
  Company Number: US-SUN PHARMACEUTICAL INDUSTRIES LTD-2021R1-293404

PATIENT
  Age: 74 Year
  Sex: Female

DRUGS (1)
  1. PREDNISONE. [Suspect]
     Active Substance: PREDNISONE
     Indication: ANTINEUTROPHIL CYTOPLASMIC ANTIBODY
     Dosage: 5 MILLIGRAM, UNK
     Route: 065

REACTIONS (2)
  - COVID-19 [Recovered/Resolved]
  - Acute kidney injury [Recovered/Resolved]
